FAERS Safety Report 9514530 (Version 3)
Quarter: 2014Q2

REPORT INFORMATION
  Report Type: Report from Study
  Country: GB (occurrence: GB)
  Receive Date: 20130911
  Receipt Date: 20140429
  Transmission Date: 20141212
  Serious: Yes (Hospitalization, Other)
  Sender: FDA-Public Use
  Company Number: GB-ROCHE-1271898

PATIENT
  Age: 89 Year
  Sex: Male

DRUGS (12)
  1. RANIBIZUMAB [Suspect]
     Indication: AGE-RELATED MACULAR DEGENERATION
     Dosage: LAST DOSE PRIOR TO SAE: 23/NOV/2012
     Route: 050
     Dates: start: 20090117
  2. LISINOPRIL [Concomitant]
     Route: 065
     Dates: start: 2012
  3. LISINOPRIL [Concomitant]
     Route: 065
     Dates: start: 201212
  4. FINASTERIDE [Concomitant]
     Route: 065
     Dates: start: 2012
  5. FINASTERIDE [Concomitant]
     Route: 065
     Dates: start: 201212
  6. FELODIPINE [Concomitant]
     Route: 065
     Dates: start: 2012
  7. FELODIPINE [Concomitant]
     Route: 065
     Dates: start: 201212
  8. ASPIRIN [Concomitant]
     Route: 065
     Dates: start: 201212, end: 20121205
  9. FORMOTEROL [Concomitant]
     Dosage: 1 PUFF
     Route: 065
     Dates: start: 2012
  10. FORMOTEROL [Concomitant]
     Dosage: 1 PUFF
     Route: 065
     Dates: start: 201212
  11. BUDESONIDE [Concomitant]
     Indication: ASTHMA
     Route: 065
     Dates: start: 2012
  12. BUDESONIDE [Concomitant]
     Route: 065
     Dates: start: 201212

REACTIONS (1)
  - Transient ischaemic attack [Recovered/Resolved]
